FAERS Safety Report 20794048 (Version 1)
Quarter: 2022Q2

REPORT INFORMATION
  Report Type: Report from Study
  Country: IT (occurrence: IT)
  Receive Date: 20220506
  Receipt Date: 20220506
  Transmission Date: 20220721
  Serious: Yes (Death)
  Sender: FDA-Public Use
  Company Number: IT-UCBSA-2020002526

PATIENT
  Sex: Female

DRUGS (2)
  1. ROTIGOTINE [Suspect]
     Active Substance: ROTIGOTINE
     Indication: Product used for unknown indication
     Dosage: 2 MG
  2. ROTIGOTINE [Suspect]
     Active Substance: ROTIGOTINE
     Dosage: 2 PATCHES OF 2MG PER DAY
     Dates: end: 20220420

REACTIONS (6)
  - Death [Fatal]
  - COVID-19 [Unknown]
  - Condition aggravated [Unknown]
  - Tremor [Unknown]
  - Nervousness [Unknown]
  - Stress [Unknown]

NARRATIVE: CASE EVENT DATE: 20220420
